FAERS Safety Report 5903558-6 (Version None)
Quarter: 2008Q3

REPORT INFORMATION
  Report Type: 
  Country: None (occurrence: None)
  Receive Date: 20080930
  Receipt Date: 20080922
  Transmission Date: 20090109
  Serious: Yes (Life-Threatening, Hospitalization, Other)
  Sender: FDA-Public Use
  Company Number: FI-PFIZER INC-2007083151

PATIENT
  Age: 33 Year
  Sex: Female

DRUGS (1)
  1. CYTOTEC [Suspect]
     Indication: INDUCED LABOUR
     Dates: start: 20070811, end: 20070801

REACTIONS (4)
  - CAESAREAN SECTION [None]
  - DECUBITUS ULCER [None]
  - HAEMORRHAGE [None]
  - OFF LABEL USE [None]
